FAERS Safety Report 17984221 (Version 1)
Quarter: 2020Q3

REPORT INFORMATION
  Report Type: Report from Study
  Country: DE (occurrence: DE)
  Receive Date: 20200706
  Receipt Date: 20200706
  Transmission Date: 20201103
  Serious: Yes (Hospitalization)
  Sender: FDA-Public Use
  Company Number: DE-UCBSA-2020026184

PATIENT
  Sex: Female

DRUGS (3)
  1. CERTOLIZUMAB PEGOL RA [Suspect]
     Active Substance: CERTOLIZUMAB PEGOL
     Indication: RHEUMATOID ARTHRITIS
     Dosage: 200 MILLIGRAM, EV 2 WEEKS(QOW)
     Dates: end: 20191208
  2. ORENCIA [Concomitant]
     Active Substance: ABATACEPT
  3. MTX [METHOTREXATE] [Concomitant]
     Active Substance: METHOTREXATE SODIUM
     Dosage: 15 MILLIGRAM, WEEKLY (QW)

REACTIONS (2)
  - Cystocele [Recovered/Resolved]
  - Rectocele [Recovered/Resolved]

NARRATIVE: CASE EVENT DATE: 201912
